FAERS Safety Report 19020815 (Version 4)
Quarter: 2021Q3

REPORT INFORMATION
  Report Type: Report from Study
  Country: JP (occurrence: JP)
  Receive Date: 20210317
  Receipt Date: 20210712
  Transmission Date: 20211014
  Serious: Yes (Hospitalization)
  Sender: FDA-Public Use
  Company Number: JP-BIOMARINAP-JP-2021-135257

PATIENT
  Age: 38 Year
  Sex: Male
  Weight: 69.3 kg

DRUGS (2)
  1. PEGVALIASE. [Suspect]
     Active Substance: PEGVALIASE
     Indication: PHENYLKETONURIA
     Dosage: 60 MILLIGRAM, QD
     Route: 058
     Dates: start: 20190911
  2. PEGVALIASE. [Suspect]
     Active Substance: PEGVALIASE
     Dosage: 20 MILLIGRAM
     Route: 058

REACTIONS (1)
  - Arthritis allergic [Recovering/Resolving]

NARRATIVE: CASE EVENT DATE: 20210218
